FAERS Safety Report 4552251-3 (Version None)
Quarter: 2004Q4

REPORT INFORMATION
  Report Type: 
  Country: None (occurrence: None)
  Receive Date: 20041217
  Receipt Date: 20041020
  Transmission Date: 20050328
  Serious: No
  Sender: FDA-Public Use
  Company Number: 2004-BP-10425BP

PATIENT
  Sex: Male

DRUGS (5)
  1. SPIRIVA [Suspect]
     Indication: CHRONIC OBSTRUCTIVE AIRWAYS DISEASE
     Dosage: 18 MCG (18 MCG), IH
     Route: 055
  2. PULMICORT [Concomitant]
  3. SERVENT (SALMETEROL XINAFOATE) [Concomitant]
  4. DIOVAN [Concomitant]
  5. LIPITOR [Concomitant]

REACTIONS (1)
  - DRY MOUTH [None]
